FAERS Safety Report 4467515-1 (Version None)
Quarter: 2004Q4

REPORT INFORMATION
  Report Type: 
  Country: None (occurrence: None)
  Receive Date: 20041006
  Receipt Date: 20040928
  Transmission Date: 20050328
  Serious: Yes (Death)
  Sender: FDA-Public Use
  Company Number: CO-MERCK-0409COL00018

PATIENT
  Age: 75 Year
  Sex: Female

DRUGS (3)
  1. GLYBURIDE [Concomitant]
     Indication: DIABETES MELLITUS
     Route: 048
  2. HYZAAR [Suspect]
     Indication: HYPERTENSION
     Route: 048
     Dates: start: 20040629, end: 20040911
  3. METHOTREXATE [Concomitant]
     Route: 065

REACTIONS (1)
  - DEATH [None]
